FAERS Safety Report 9900311 (Version 1)
Quarter: 2014Q1

REPORT INFORMATION
  Report Type: Report from Study
  Country: AR (occurrence: AR)
  Receive Date: 20140216
  Receipt Date: 20140216
  Transmission Date: 20141002
  Serious: Yes (Hospitalization)
  Sender: FDA-Public Use
  Company Number: AR-US-EMD SERONO, INC.-7269107

PATIENT
  Age: 20 Year
  Sex: Male

DRUGS (1)
  1. SAIZEN [Suspect]
     Indication: RENAL IMPAIRMENT
     Dates: start: 20100305, end: 20130517

REACTIONS (1)
  - Renal injury [Unknown]
